FAERS Safety Report 9171715 (Version 2)
Quarter: 2013Q2

REPORT INFORMATION
  Report Type: Report from Study
  Country: US (occurrence: US)
  Receive Date: 20130319
  Receipt Date: 20130527
  Transmission Date: 20140414
  Serious: Yes (Other)
  Sender: FDA-Public Use
  Company Number: PHEH2013US006312

PATIENT
  Age: 53 Year
  Sex: Male
  Weight: 99 kg

DRUGS (2)
  1. GLEEVEC [Suspect]
     Indication: LIVER FUNCTION TEST ABNORMAL
     Dosage: 400 MG, DAILY
     Route: 048
     Dates: start: 201107, end: 201302
  2. GLEEVEC [Suspect]
     Indication: OFF LABEL USE

REACTIONS (2)
  - Hepatic function abnormal [Recovering/Resolving]
  - Liver function test abnormal [Recovering/Resolving]
